FAERS Safety Report 15645118 (Version 1)
Quarter: 2018Q4

REPORT INFORMATION
  Report Type: Spontaneous
  Country: US (occurrence: US)
  Receive Date: 20181121
  Receipt Date: 20181121
  Transmission Date: 20190205
  Serious: No
  Sender: FDA-Public Use
  Company Number: US-PFIZER INC-2018472290

PATIENT
  Sex: Male

DRUGS (1)
  1. GLIPIZIDE. [Suspect]
     Active Substance: GLIPIZIDE
     Dosage: 10 MG, 2X/DAY

REACTIONS (2)
  - Urticaria [Unknown]
  - Circumstance or information capable of leading to medication error [Unknown]
